FAERS Safety Report 14293644 (Version 1)
Quarter: 2017Q4

REPORT INFORMATION
  Report Type: Spontaneous
  Country: HR (occurrence: HR)
  Receive Date: 20171216
  Receipt Date: 20171216
  Transmission Date: 20180321
  Serious: Yes (Other)
  Sender: FDA-Public Use
  Company Number: HR-ROCHE-2041595

PATIENT
  Sex: Female

DRUGS (8)
  1. CAPECITABINE. [Suspect]
     Active Substance: CAPECITABINE
     Indication: BREAST CANCER METASTATIC
     Dosage: DATE OF LAST DOSE: FEB/2017
     Route: 065
     Dates: start: 201612
  2. TAMOXIFEN [Suspect]
     Active Substance: TAMOXIFEN
     Indication: BREAST CANCER METASTATIC
     Dosage: DATE OF LAST DOSE: SEP/2016
     Route: 065
     Dates: start: 201407
  3. LETROZOLE. [Suspect]
     Active Substance: LETROZOLE
     Indication: BREAST CANCER METASTATIC
     Dosage: DATE OF LAST ADMINISTRATION: JUL/2014
     Route: 065
     Dates: start: 201308
  4. FULVESTRANT. [Suspect]
     Active Substance: FULVESTRANT
     Indication: BREAST CANCER METASTATIC
     Dosage: DATE OF LAST DOSE: DEC/2016
     Route: 065
     Dates: start: 201610
  5. MEGACE [Suspect]
     Active Substance: MEGESTROL ACETATE
     Dosage: DATE OF LAST DOSE: OCT/2016
     Route: 065
     Dates: start: 201609
  6. WARFARIN [Concomitant]
     Active Substance: WARFARIN
     Indication: PRODUCT USED FOR UNKNOWN INDICATION
     Route: 065
  7. PACLITAXEL. [Suspect]
     Active Substance: PACLITAXEL
     Indication: BREAST CANCER METASTATIC
     Dosage: UNK UNK, QW
     Route: 065
     Dates: start: 201301, end: 201307
  8. MEGACE [Suspect]
     Active Substance: MEGESTROL ACETATE
     Indication: BREAST CANCER METASTATIC
     Dosage: DATE OF LAST DOSE: AUG/2017
     Route: 065

REACTIONS (1)
  - Malignant neoplasm progression [Unknown]
